FAERS Safety Report 4270979-X (Version None)
Quarter: 2004Q1

REPORT INFORMATION
  Report Type: 
  Country: None (occurrence: None)
  Receive Date: 20040114
  Receipt Date: 20040109
  Transmission Date: 20041129
  Serious: Yes (Life-Threatening, Hospitalization, Other)
  Sender: FDA-Public Use
  Company Number: WAES 0401CAN00030

PATIENT
  Age: 66 Year
  Sex: Female
  Weight: 63 kg

DRUGS (5)
  1. FOSAMAX [Suspect]
     Route: 048
     Dates: start: 20031214, end: 20031228
  2. BISOPROLOL FUMARATE [Concomitant]
     Dates: start: 20030401, end: 20040102
  3. CANDESARTAN [Concomitant]
     Dates: start: 20010301
  4. ROSUVASTATIN CALCIUM [Concomitant]
     Indication: HYPERCHOLESTEROLAEMIA
     Dates: start: 20031101
  5. WARFARIN [Concomitant]
     Dates: start: 20020101

REACTIONS (3)
  - ARRHYTHMIA [None]
  - DYSPEPSIA [None]
  - PULMONARY OEDEMA [None]
